FAERS Safety Report 5578943-5 (Version None)
Quarter: 2008Q1

REPORT INFORMATION
  Report Type: 
  Country: None (occurrence: None)
  Receive Date: 20080102
  Receipt Date: 20071220
  Transmission Date: 20080703
  Serious: Yes (Other)
  Sender: FDA-Public Use
  Company Number: GB-ASTRAZENECA-2007GB02630

PATIENT
  Age: 57 Year
  Sex: Female

DRUGS (8)
  1. LIDOCAINE [Suspect]
     Dates: start: 20070614, end: 20070614
  2. ADRENALINE [Concomitant]
     Indication: EYE IRRIGATION
     Dates: start: 20070614, end: 20070614
  3. CYCLOPENTOLATE HCL [Concomitant]
     Indication: EYE OPERATION
     Route: 031
     Dates: start: 20070614, end: 20070614
  4. FLURBIPROFEN [Concomitant]
     Route: 031
     Dates: start: 20070614, end: 20070614
  5. GLYCEROL 2.6% [Concomitant]
     Indication: EYE OPERATION
     Route: 031
  6. PHENYLEPHRINE [Concomitant]
     Indication: EYE OPERATION
     Route: 031
     Dates: start: 20070614, end: 20070614
  7. POVIDONE [Concomitant]
     Indication: EYE OPERATION
     Dates: start: 20070614, end: 20070614
  8. VANCOMYCIN [Concomitant]
     Indication: EYE IRRIGATION
     Dates: start: 20070614, end: 20070614

REACTIONS (1)
  - TOXIC ANTERIOR SEGMENT SYNDROME [None]
